FAERS Safety Report 14149952 (Version 2)
Quarter: 2017Q4

REPORT INFORMATION
  Report Type: Spontaneous
  Country: PL (occurrence: PL)
  Receive Date: 20171101
  Receipt Date: 20171102
  Transmission Date: 20180321
  Serious: Yes (Hospitalization, Other)
  Sender: FDA-Public Use
  Company Number: PL-GILEAD-2017-0302030

PATIENT
  Age: 57 Year
  Sex: Female
  Weight: 59 kg

DRUGS (4)
  1. MODERIBA [Suspect]
     Active Substance: RIBAVIRIN
     Dosage: 400 UNK, UNK
     Route: 065
  2. MODERIBA [Suspect]
     Active Substance: RIBAVIRIN
     Indication: CHRONIC HEPATITIS C
     Dosage: 1000 MG, UNK
     Route: 065
     Dates: start: 20170831
  3. MODERIBA [Suspect]
     Active Substance: RIBAVIRIN
     Dosage: 600 UNK, UNK
     Route: 065
  4. SOVALDI [Suspect]
     Active Substance: SOFOSBUVIR
     Indication: CHRONIC HEPATITIS C
     Dosage: UNK
     Route: 065
     Dates: start: 20170831

REACTIONS (5)
  - Palpitations [Not Recovered/Not Resolved]
  - Asthenia [Not Recovered/Not Resolved]
  - Headache [Not Recovered/Not Resolved]
  - Anaemia [Unknown]
  - Insomnia [Not Recovered/Not Resolved]
